FAERS Safety Report 21043751 (Version 1)
Quarter: 2022Q3

REPORT INFORMATION
  Report Type: Spontaneous
  Country: US (occurrence: None)
  Receive Date: 20220705
  Receipt Date: 20220705
  Transmission Date: 20221027
  Serious: Yes (Hospitalization)
  Sender: FDA-Public Use
  Company Number: None

PATIENT
  Sex: Female

DRUGS (2)
  1. PULMOZYME [Suspect]
     Active Substance: DORNASE ALFA
     Indication: Cystic fibrosis
     Dosage: OTHER QUANTITY : 2.5MG/2.5ML;?OTHER FREQUENCY : DAILY WITH MASK;?OTHER ROUTE : NEBULZIER;?INHALE 1 V
     Route: 050
     Dates: start: 20210422
  2. PULMOZYME [Suspect]
     Active Substance: DORNASE ALFA
     Dosage: OTHER QUANTITY : 1 VIAL;?OTHER FREQUENCY : DAILY WITH MASK;?
     Route: 055

REACTIONS (3)
  - Blood glucose decreased [None]
  - Dehydration [None]
  - COVID-19 [None]
